FAERS Safety Report 8309861-7 (Version None)
Quarter: 2012Q1

REPORT INFORMATION
  Report Type: 
  Country: None (occurrence: None)
  Receive Date: 20120315
  Receipt Date: 20110330
  Transmission Date: 20120608
  Serious: No
  Sender: FDA-Public Use
  Company Number: PHHY2011US19187

PATIENT
  Age: 43 Year
  Sex: Female
  Weight: 58 kg

DRUGS (3)
  1. ADVATE [Concomitant]
  2. GILENYA [Suspect]
     Indication: MULTIPLE SCLEROSIS
     Dosage: 0.5 MG, QD, ORAL
     Route: 048
     Dates: start: 20110222
  3. NUVIGIL [Concomitant]

REACTIONS (3)
  - NAUSEA [None]
  - ASTHENIA [None]
  - VISION BLURRED [None]
